FAERS Safety Report 21410906 (Version 1)
Quarter: 2022Q4

REPORT INFORMATION
  Report Type: Spontaneous
  Country: ES (occurrence: ES)
  Receive Date: 20221005
  Receipt Date: 20221005
  Transmission Date: 20230112
  Serious: Yes (Other)
  Sender: FDA-Public Use
  Company Number: ES-FreseniusKabi-FK202210696

PATIENT
  Age: 8 Year
  Sex: Female
  Weight: 19 kg

DRUGS (13)
  1. VORICONAZOLE [Suspect]
     Active Substance: VORICONAZOLE
     Indication: Bronchopulmonary aspergillosis
     Dosage: 0.5 DAY 9 MG/KG/12H; ROUTE NOT STATED
     Route: 065
  2. VORICONAZOLE [Suspect]
     Active Substance: VORICONAZOLE
     Dosage: 300 MILLIGRAM, QD, 600 MILLIGRAM DAILY;
     Route: 065
  3. VORICONAZOLE [Suspect]
     Active Substance: VORICONAZOLE
     Dosage: 200 MILLIGRAM, BID, 0.5 DAY
     Route: 065
  4. VORICONAZOLE [Suspect]
     Active Substance: VORICONAZOLE
     Dosage: BID,20 MG/KG/12H;TARGET CONC. OF 4.8 MG/L,750MG
     Route: 065
  5. VORICONAZOLE [Suspect]
     Active Substance: VORICONAZOLE
     Dosage: 171 MG, QD, 342 MG DAILY; 9 MG/KG/12H
     Route: 065
  6. VORICONAZOLE [Suspect]
     Active Substance: VORICONAZOLE
     Dosage: 200 MILLIGRAM, QD, 400 MILLIGRAM DAILY;
     Route: 065
  7. VORICONAZOLE [Suspect]
     Active Substance: VORICONAZOLE
     Dosage: 375 MILLIGRAM, QD
     Route: 065
  8. VORICONAZOLE [Suspect]
     Active Substance: VORICONAZOLE
     Dosage: 300 MILLIGRAM, TWO TIMES A DAY
     Route: 065
  9. VORICONAZOLE [Suspect]
     Active Substance: VORICONAZOLE
     Dosage: 375 MILLIGRAM, TWO TIMES A DAY
     Route: 065
  10. VORICONAZOLE [Suspect]
     Active Substance: VORICONAZOLE
     Dosage: 171 MILLIGRAM, TWO TIMES A DAY
     Route: 065
  11. VORICONAZOLE [Suspect]
     Active Substance: VORICONAZOLE
     Dosage: 200 MILLIGRAM, TWO TIMES A DAY
     Route: 065
  12. CASPOFUNGIN [Suspect]
     Active Substance: CASPOFUNGIN
     Indication: Bronchopulmonary aspergillosis
     Dosage: UNK
     Route: 065
  13. CASPOFUNGIN [Concomitant]
     Active Substance: CASPOFUNGIN
     Indication: Bronchopulmonary aspergillosis
     Dosage: 50 MILLIGRAM/SQ. METER (50 MG/M2)
     Route: 065

REACTIONS (3)
  - Hepatotoxicity [Unknown]
  - Drug-induced liver injury [Unknown]
  - Drug level below therapeutic [Recovered/Resolved]
